FAERS Safety Report 10022469 (Version 4)
Quarter: 2015Q2

REPORT INFORMATION
  Report Type: Spontaneous
  Country: US (occurrence: US)
  Receive Date: 20140319
  Receipt Date: 20150528
  Transmission Date: 20150821
  Serious: Yes (Hospitalization, Disabling, Other)
  Sender: FDA-Public Use
  Company Number: US-SA-2014SA029800

PATIENT
  Age: 61 Year
  Sex: Male

DRUGS (24)
  1. BENICAR [Concomitant]
     Active Substance: OLMESARTAN MEDOXOMIL
  2. FLONASE [Concomitant]
     Active Substance: FLUTICASONE PROPIONATE
     Dosage: 1 SPRAY
  3. DILTIAZEM [Concomitant]
     Active Substance: DILTIAZEM
     Route: 048
  4. PRADAXA [Concomitant]
     Active Substance: DABIGATRAN ETEXILATE MESYLATE
  5. ASPIRIN. [Concomitant]
     Active Substance: ASPIRIN
  6. VYTORIN [Concomitant]
     Active Substance: EZETIMIBE\SIMVASTATIN
  7. LUTEIN [Concomitant]
     Active Substance: LUTEIN
  8. PRAVASTATIN [Concomitant]
     Active Substance: PRAVASTATIN\PRAVASTATIN SODIUM
  9. PLAVIX [Suspect]
     Active Substance: CLOPIDOGREL BISULFATE
     Indication: STENT PLACEMENT
     Route: 048
     Dates: start: 20040313, end: 20060512
  10. HYDROCHLOROTHIAZIDE. [Concomitant]
     Active Substance: HYDROCHLOROTHIAZIDE
     Route: 048
  11. FISH OIL [Concomitant]
     Active Substance: FISH OIL
     Route: 048
  12. PLAVIX [Suspect]
     Active Substance: CLOPIDOGREL BISULFATE
     Indication: STENT PLACEMENT
     Route: 048
     Dates: start: 20070719, end: 20071212
  13. DIGITEK [Concomitant]
     Active Substance: DIGOXIN
  14. NORVASC [Concomitant]
     Active Substance: AMLODIPINE BESYLATE
  15. ATIVAN [Concomitant]
     Active Substance: LORAZEPAM
     Route: 048
  16. DIGOXIN. [Concomitant]
     Active Substance: DIGOXIN
  17. TERAZOSIN [Concomitant]
     Active Substance: TERAZOSIN\TERAZOSIN HYDROCHLORIDE
     Route: 048
  18. ZOCOR [Concomitant]
     Active Substance: SIMVASTATIN
  19. ASPIRIN. [Concomitant]
     Active Substance: ASPIRIN
     Route: 048
     Dates: start: 200403, end: 200712
  20. LORTAB [Concomitant]
     Active Substance: ACETAMINOPHEN\HYDROCODONE BITARTRATE
     Indication: PAIN
     Route: 048
  21. OMEPRAZOLE. [Concomitant]
     Active Substance: OMEPRAZOLE
     Route: 048
  22. LISINOPRIL. [Concomitant]
     Active Substance: LISINOPRIL
     Route: 048
  23. VITAMIN B12 [Concomitant]
     Active Substance: CYANOCOBALAMIN
     Route: 048
  24. DEXILANT [Concomitant]
     Active Substance: DEXLANSOPRAZOLE

REACTIONS (11)
  - Physical disability [Not Recovered/Not Resolved]
  - Gastrointestinal haemorrhage [Recovered/Resolved]
  - Tension [Not Recovered/Not Resolved]
  - Pain [Not Recovered/Not Resolved]
  - Rectal haemorrhage [Recovered/Resolved]
  - Haematochezia [Unknown]
  - Economic problem [Not Recovered/Not Resolved]
  - Psychological trauma [Not Recovered/Not Resolved]
  - Deformity [Not Recovered/Not Resolved]
  - Multiple injuries [Not Recovered/Not Resolved]
  - Anhedonia [Not Recovered/Not Resolved]

NARRATIVE: CASE EVENT DATE: 20070810
